FAERS Safety Report 4434795-8 (Version None)
Quarter: 2004Q3

REPORT INFORMATION
  Report Type: 
  Country: None (occurrence: None)
  Receive Date: 20040726
  Receipt Date: 20040402
  Transmission Date: 20050211
  Serious: No
  Sender: FDA-Public Use
  Company Number: USA040260046

PATIENT
  Age: 77 Year
  Sex: Female

DRUGS (3)
  1. FORTEO [Suspect]
     Indication: BONE DISORDER
     Dosage: 20 UG/ 1 DAY
     Dates: start: 20040128, end: 20040224
  2. ACETYLSALICYLIC ACID SRT [Concomitant]
  3. FOSAMAX [Concomitant]

REACTIONS (4)
  - BLOOD PRESSURE INCREASED [None]
  - FEELING JITTERY [None]
  - HEADACHE [None]
  - HEART RATE INCREASED [None]
